FAERS Safety Report 9963898 (Version 3)
Quarter: 2014Q2

REPORT INFORMATION
  Report Type: Report from Study
  Country: US (occurrence: US)
  Receive Date: 20140305
  Receipt Date: 20140415
  Transmission Date: 20141212
  Serious: Yes (Hospitalization)
  Sender: FDA-Public Use
  Company Number: US-ABBVIE-14P-163-1205672-00

PATIENT
  Age: 68 Year
  Sex: Male
  Weight: 165.2 kg

DRUGS (50)
  1. RIBAVIRIN [Suspect]
     Indication: PRODUCT USED FOR UNKNOWN INDICATION
     Route: 048
     Dates: start: 20131211, end: 20140206
  2. RIBAVIRIN [Suspect]
     Route: 048
     Dates: start: 20140207, end: 20140207
  3. RIBAVIRIN [Suspect]
     Route: 048
     Dates: start: 20140208, end: 20140209
  4. RIBAVIRIN [Suspect]
     Route: 048
     Dates: start: 20140210, end: 20140210
  5. RIBAVIRIN [Suspect]
     Dosage: 0.5 EA
     Dates: start: 20140209
  6. RIBAVIRIN [Suspect]
     Dosage: 0.5 EA
     Dates: start: 20140210
  7. RIBAVIRIN [Suspect]
     Route: 048
  8. SOF/LDV (SOFOSBUVIR, LEDIPASVIR) [Suspect]
     Indication: PRODUCT USED FOR UNKNOWN INDICATION
     Route: 048
     Dates: start: 20131211
  9. ALUM-MAG HYDROXIDE SIMETH(ALUMINUM + MAGNESIUM HYDROXIDE,SIMETHICONE) [Concomitant]
     Indication: CHEST PAIN
     Route: 048
     Dates: start: 20140113, end: 20140114
  10. LOSARTAN POTASSIUM [Concomitant]
     Indication: HYPERTENSION
     Route: 048
     Dates: start: 20120708
  11. LOSARTAN POTASSIUM [Concomitant]
     Route: 048
  12. METFORMIN HCL [Concomitant]
     Indication: GLUCOSE TOLERANCE IMPAIRED
     Route: 048
     Dates: start: 201308
  13. METFORMIN HCL [Concomitant]
     Route: 048
  14. GI COCKTAIL (GI COCKTAIL) [Concomitant]
     Indication: CHEST PAIN
     Route: 048
     Dates: start: 20140113, end: 20140114
  15. SODIUM CHLORIDE [Concomitant]
     Indication: CHEST PAIN
     Route: 042
     Dates: start: 20140113, end: 20140114
  16. SODIUM CHLORIDE [Concomitant]
     Route: 042
     Dates: start: 20140210
  17. ONDANSETRON HYDROCHLORIDE [Concomitant]
     Indication: CHEST PAIN
     Route: 042
     Dates: start: 20140113, end: 20140114
  18. ASPIRIN [Concomitant]
     Indication: CARDIAC DISORDER
     Route: 048
     Dates: start: 2009
  19. ASPIRIN [Concomitant]
     Route: 048
  20. MORPHINE SULFATE [Concomitant]
     Indication: CHEST PAIN
     Route: 030
     Dates: start: 20140113, end: 20140114
  21. HYDROMORPHONE HCL [Concomitant]
     Indication: CHEST PAIN
     Route: 030
     Dates: start: 20140113, end: 20140114
  22. PANTOPRAZOLE SODIUM [Concomitant]
     Indication: CHEST PAIN
     Route: 048
     Dates: start: 20140113, end: 20140114
  23. PANTOPRAZOLE SODIUM [Concomitant]
     Route: 042
     Dates: start: 20140208
  24. PANTOPRAZOLE SODIUM [Concomitant]
     Route: 042
     Dates: start: 20140209
  25. PANTOPRAZOLE SODIUM [Concomitant]
     Route: 042
     Dates: start: 20140210
  26. INSULIN LISPRO [Concomitant]
     Indication: DIABETES MELLITUS
     Route: 058
     Dates: start: 20140113, end: 20140114
  27. HEPARIN [Concomitant]
     Indication: CHEST PAIN
     Route: 058
     Dates: start: 20140113, end: 20140113
  28. ALPRAZOLAM [Concomitant]
     Indication: CHEST PAIN
     Route: 048
     Dates: start: 20140113, end: 20140113
  29. FINASTERIDE [Concomitant]
     Indication: DYSURIA
     Route: 048
     Dates: start: 201308
  30. FINASTERIDE [Concomitant]
     Dates: start: 20140208
  31. FINASTERIDE [Concomitant]
     Dates: start: 20140209
  32. FINASTERIDE [Concomitant]
     Route: 048
  33. VALSARTAN [Concomitant]
     Indication: HYPERTENSION
     Route: 048
     Dates: start: 20140113, end: 20140113
  34. HCTZ [Concomitant]
     Indication: HYPERTENSION
     Route: 048
     Dates: start: 201206
  35. FLOMAX [Concomitant]
     Indication: BENIGN PROSTATIC HYPERPLASIA
     Route: 048
     Dates: start: 201206
  36. OXYBUTYNIN CHLORIDE [Concomitant]
     Indication: BENIGN PROSTATIC HYPERPLASIA
     Route: 048
     Dates: start: 201308
  37. OXYBUTYNIN CHLORIDE [Concomitant]
     Route: 042
  38. OXYBUTYNIN CHLORIDE [Concomitant]
     Dates: start: 20140208
  39. OXYBUTYNIN CHLORIDE [Concomitant]
     Dates: start: 20140209
  40. OXYBUTYNIN CHLORIDE [Concomitant]
     Dates: start: 20140210
  41. OXYBUTYNIN CHLORIDE [Concomitant]
     Route: 048
  42. NITROGLYCERIN [Concomitant]
     Indication: CHEST PAIN
     Route: 060
     Dates: start: 20140113, end: 20140114
  43. HUMALOG U-100 3M [Concomitant]
     Indication: PRODUCT USED FOR UNKNOWN INDICATION
     Dosage: 1 DOSE
     Dates: start: 20140208, end: 20140209
  44. TAMSULOSIN [Concomitant]
     Indication: PRODUCT USED FOR UNKNOWN INDICATION
     Dates: start: 20140208
  45. TAMSULOSIN [Concomitant]
     Route: 048
     Dates: start: 20140209
  46. TAMSULOSIN [Concomitant]
     Route: 048
  47. TEMAZEPAM [Concomitant]
     Indication: PRODUCT USED FOR UNKNOWN INDICATION
     Dates: start: 20140208
  48. TEMAZEPAM [Concomitant]
     Dates: start: 20140209
  49. PREDNISOLONE ACETATE [Concomitant]
     Indication: CATARACT OPERATION
     Route: 047
     Dates: start: 20131226, end: 20140128
  50. ZANTAC [Concomitant]
     Indication: GASTROOESOPHAGEAL REFLUX DISEASE
     Route: 048
     Dates: start: 20140123

REACTIONS (2)
  - Renal failure acute [Unknown]
  - Anaemia [Recovered/Resolved]
